FAERS Safety Report 23451972 (Version 3)
Quarter: 2024Q2

REPORT INFORMATION
  Report Type: Spontaneous
  Country: US (occurrence: US)
  Receive Date: 20240129
  Receipt Date: 20240514
  Transmission Date: 20240716
  Serious: No
  Sender: FDA-Public Use
  Company Number: US-SA-SAC20240119000728

PATIENT
  Age: 71 Year
  Sex: Female

DRUGS (1)
  1. DUPIXENT [Suspect]
     Active Substance: DUPILUMAB
     Indication: Asthma
     Dosage: 300 MG, QOW
     Route: 058
     Dates: start: 20231211, end: 20231228

REACTIONS (6)
  - Fatigue [Unknown]
  - Pain [Unknown]
  - Contusion [Unknown]
  - Psoriasis [Unknown]
  - Urticaria [Unknown]
  - Rash [Unknown]
